FAERS Safety Report 23295861 (Version 1)
Quarter: 2023Q4

REPORT INFORMATION
  Report Type: Spontaneous
  Country: GB (occurrence: GB)
  Receive Date: 20231214
  Receipt Date: 20231214
  Transmission Date: 20240110
  Serious: Yes (Hospitalization, Other)
  Sender: FDA-Public Use
  Company Number: None

PATIENT
  Sex: Female

DRUGS (4)
  1. LUPRON DEPOT [Suspect]
     Active Substance: LEUPROLIDE ACETATE
     Indication: Adenomyosis
     Dosage: UNK
     Route: 065
     Dates: start: 20220720
  2. ESTRADIOL [Concomitant]
     Active Substance: ESTRADIOL
     Indication: Product used for unknown indication
     Dosage: UNK
     Route: 065
  3. PROGESTERONE DCI [Concomitant]
     Indication: Product used for unknown indication
     Dosage: UNK
     Route: 065
  4. MIRTAZAPINE [Concomitant]
     Active Substance: MIRTAZAPINE
     Indication: Product used for unknown indication
     Dosage: UNK
     Route: 065

REACTIONS (16)
  - Medication error [Unknown]
  - Neuralgia [Not Recovered/Not Resolved]
  - Sensory loss [Not Recovered/Not Resolved]
  - Paraesthesia [Not Recovered/Not Resolved]
  - Menopausal symptoms [Recovered/Resolved]
  - Chest pain [Not Recovered/Not Resolved]
  - Conversion disorder [Not Recovered/Not Resolved]
  - Neurological symptom [Not Recovered/Not Resolved]
  - Heart rate increased [Not Recovered/Not Resolved]
  - Dyspnoea [Not Recovered/Not Resolved]
  - Heart rate increased [Not Recovered/Not Resolved]
  - Chest pain [Recovering/Resolving]
  - Muscular weakness [Not Recovered/Not Resolved]
  - Platelet count decreased [Recovered/Resolved]
  - Injection site mass [Not Recovered/Not Resolved]
  - Paraesthesia [Not Recovered/Not Resolved]
